FAERS Safety Report 9562901 (Version 2)
Quarter: 2015Q3

REPORT INFORMATION
  Report Type: Report from Study
  Country: CO (occurrence: CO)
  Receive Date: 20130927
  Receipt Date: 20150929
  Transmission Date: 20151125
  Serious: Yes (Hospitalization, Other)
  Sender: FDA-Public Use
  Company Number: CO-ABBVIE-13P-036-1151415-00

PATIENT
  Age: 52 Year
  Sex: Male
  Weight: 57 kg

DRUGS (1)
  1. HUMIRA [Suspect]
     Active Substance: ADALIMUMAB
     Indication: RHEUMATOID ARTHRITIS
     Route: 058
     Dates: start: 20091203, end: 20140219

REACTIONS (5)
  - Patient-device incompatibility [Not Recovered/Not Resolved]
  - Arthralgia [Recovering/Resolving]
  - Purulent discharge [Not Recovered/Not Resolved]
  - Postoperative wound complication [Not Recovered/Not Resolved]
  - Wound complication [Not Recovered/Not Resolved]

NARRATIVE: CASE EVENT DATE: 20130921
